FAERS Safety Report 11284856 (Version 3)
Quarter: 2016Q3

REPORT INFORMATION
  Report Type: Report from Study
  Country: US (occurrence: US)
  Receive Date: 20150720
  Receipt Date: 20160817
  Transmission Date: 20161109
  Serious: No
  Sender: FDA-Public Use
  Company Number: US-AEGERION PHARMACEUTICAL INC.-AEGR001177

PATIENT
  Age: 54 Year
  Sex: Male
  Weight: 81.18 kg

DRUGS (3)
  1. JUXTAPID [Suspect]
     Active Substance: LOMITAPIDE MESYLATE
     Indication: TYPE IIA HYPERLIPIDAEMIA
     Dosage: 5 MG, QD
     Route: 048
     Dates: start: 20150110, end: 20150224
  2. JUXTAPID [Suspect]
     Active Substance: LOMITAPIDE MESYLATE
     Dosage: 10 MG, QD
     Route: 048
     Dates: start: 20160110
  3. JUXTAPID [Suspect]
     Active Substance: LOMITAPIDE MESYLATE
     Dosage: 10 MG, QD
     Route: 048
     Dates: start: 20150225, end: 201512

REACTIONS (15)
  - Bowel movement irregularity [Not Recovered/Not Resolved]
  - Weight decreased [Unknown]
  - Sleep apnoea syndrome [Recovered/Resolved]
  - Gastrointestinal disorder [Recovered/Resolved]
  - Diarrhoea [Unknown]
  - Aspartate aminotransferase increased [Not Recovered/Not Resolved]
  - Insomnia [Unknown]
  - Dizziness [Recovered/Resolved]
  - Mental disorder [Not Recovered/Not Resolved]
  - Therapy cessation [Recovered/Resolved]
  - Psychomotor hyperactivity [Recovered/Resolved]
  - Palpitations [Recovered/Resolved]
  - Middle insomnia [Not Recovered/Not Resolved]
  - Chest pain [Recovered/Resolved]
  - Alanine aminotransferase increased [Not Recovered/Not Resolved]

NARRATIVE: CASE EVENT DATE: 201501
